FAERS Safety Report 6286262-7 (Version None)
Quarter: 2009Q3

REPORT INFORMATION
  Report Type: 
  Country: None (occurrence: None)
  Receive Date: 20090728
  Receipt Date: 20090715
  Transmission Date: 20100115
  Serious: Yes (Hospitalization)
  Sender: FDA-Public Use
  Company Number: FR-PFIZER INC-2009240374

PATIENT
  Age: 57 Year

DRUGS (13)
  1. VIAGRA [Suspect]
     Indication: ERECTILE DYSFUNCTION
     Dosage: UNK
     Route: 048
     Dates: start: 19900101, end: 20090623
  2. DEROXAT [Suspect]
     Dosage: 40 UNK, 1X/DAY (2X20 IN THE MORNING)
     Route: 048
     Dates: start: 19900101, end: 20090623
  3. TOPALGIC [Suspect]
     Indication: MUSCULOSKELETAL PAIN
     Dosage: UNK
     Route: 048
     Dates: start: 19900101, end: 20090623
  4. DEPAKOTE [Suspect]
     Dosage: 500 UNK, 3X/DAY
     Route: 048
     Dates: start: 19900101, end: 20090623
  5. ARTANE [Suspect]
     Dosage: 50 GTT, 2X/DAY (IN THE MORNING AND IN THE EVENING)
     Route: 048
     Dates: start: 19900101, end: 20090623
  6. LEXOMIL [Suspect]
     Dosage: 1/2 (MORNING) + 1/2 (LUNCH) + 1DF (EVENING) DAILY
     Route: 048
     Dates: start: 19900101, end: 20090623
  7. MEPRONIZINE [Suspect]
     Dosage: 1 DF, 1X/DAY (AT BEDTIME)
     Route: 048
     Dates: start: 19900101, end: 20090623
  8. TEMESTA [Concomitant]
     Dosage: 2.5 UNK, 4X/DAY
     Dates: end: 20090623
  9. TEMESTA [Concomitant]
     Dosage: 2.5 UNK, 4X/DAY
     Dates: start: 20090624
  10. RISPERDAL [Concomitant]
     Dosage: 4 MG, 1X/DAY (2 DF IN THE EVENING)
     Dates: end: 20090623
  11. RISPERDAL [Concomitant]
     Dosage: 4 MG, 1X/DAY (2 DF IN THE EVENING)
     Dates: start: 20090626
  12. DOLIPRANE [Concomitant]
     Indication: MUSCULOSKELETAL PAIN
     Dosage: UNK
     Dates: end: 20090623
  13. SPASFON [Concomitant]
     Dosage: UNK
     Dates: end: 20090623

REACTIONS (1)
  - HYPONATRAEMIA [None]
